FAERS Safety Report 14069912 (Version 1)
Quarter: 2017Q4

REPORT INFORMATION
  Report Type: Spontaneous
  Country: US (occurrence: US)
  Receive Date: 20171011
  Receipt Date: 20171011
  Transmission Date: 20180321
  Serious: No
  Sender: FDA-Public Use
  Company Number: US-009507513-1710USA001437

PATIENT
  Sex: Female

DRUGS (4)
  1. PEGINTERFERON ALFA-2A. [Suspect]
     Active Substance: PEGINTERFERON ALFA-2A
     Indication: HEPATITIS C
     Dosage: 180 MICROGRAM (MCG), EVERY WEEK
     Dates: start: 20120115
  2. EPOETIN ALFA [Concomitant]
     Active Substance: ERYTHROPOIETIN
  3. VICTRELIS [Suspect]
     Active Substance: BOCEPREVIR
     Indication: HEPATITIS C
     Dosage: UNK, THRICE DAILY
     Dates: start: 20120212
  4. REBETOL [Suspect]
     Active Substance: RIBAVIRIN
     Indication: HEPATITIS C
     Dosage: 800 MG, QD
     Dates: start: 20120115

REACTIONS (5)
  - Nausea [Unknown]
  - Fatigue [Unknown]
  - Dyspnoea [Unknown]
  - Fatigue [Not Recovered/Not Resolved]
  - Haemoglobin decreased [Unknown]
